FAERS Safety Report 9424186 (Version 2)
Quarter: 2013Q3

REPORT INFORMATION
  Report Type: Report from Study
  Country: US (occurrence: US)
  Receive Date: 20130729
  Receipt Date: 20130917
  Transmission Date: 20140515
  Serious: Yes (Hospitalization)
  Sender: FDA-Public Use
  Company Number: US-ROCHE-1253469

PATIENT
  Age: 75 Year
  Sex: Female

DRUGS (1)
  1. LUCENTIS [Suspect]
     Indication: DIABETIC RETINAL OEDEMA
     Dosage: LEFT EYE
     Route: 050

REACTIONS (4)
  - Limb operation [Unknown]
  - Thrombosis [Unknown]
  - Pneumonia [Unknown]
  - Cardiac failure congestive [Unknown]
